FAERS Safety Report 8842453 (Version 1)
Quarter: 2012Q4

REPORT INFORMATION
  Report Type: 
  Country: ES (occurrence: ES)
  Receive Date: 20121016
  Receipt Date: 20121016
  Transmission Date: 20130627
  Serious: Yes (Death, Hospitalization)
  Sender: FDA-Public Use
  Company Number: JP-ASTRAZENECA-2012SE78614

PATIENT
  Age: 84 Year
  Sex: Female

DRUGS (6)
  1. PARAPRES [Suspect]
     Indication: HYPERTENSION
     Route: 048
     Dates: start: 20120112, end: 20120122
  2. COLCHICINE [Suspect]
     Indication: GOUT
     Route: 048
     Dates: start: 20120112, end: 20120120
  3. ALLOPURINOL [Suspect]
     Indication: GOUT
     Route: 048
     Dates: start: 20120112, end: 20120120
  4. ADIRO [Concomitant]
     Indication: PROPHYLAXIS
     Route: 048
     Dates: start: 2005
  5. SEGURIL [Concomitant]
     Indication: HYPERTENSION
     Route: 048
     Dates: start: 2005
  6. ASTUDAL [Concomitant]
     Indication: HYPERTENSION
     Route: 048
     Dates: start: 2005, end: 20120120

REACTIONS (4)
  - Cerebrovascular accident [Fatal]
  - Atrioventricular block complete [Recovered/Resolved with Sequelae]
  - Atrial fibrillation [Unknown]
  - Hyperkalaemia [Recovered/Resolved]
